FAERS Safety Report 6575730-6 (Version None)
Quarter: 2010Q1

REPORT INFORMATION
  Report Type: 
  Country: None (occurrence: None)
  Receive Date: 20100209
  Receipt Date: 20100204
  Transmission Date: 20100710
  Serious: Yes (Death)
  Sender: FDA-Public Use
  Company Number: FI-JNJFOC-20100202721

PATIENT
  Age: 5 Decade
  Sex: Male

DRUGS (3)
  1. RISPERDAL CONSTA [Suspect]
     Indication: PSYCHOTIC DISORDER
     Route: 030
  2. ANTIDEPRESSANTS [Concomitant]
  3. SEDATIVES [Concomitant]

REACTIONS (1)
  - DEATH [None]
